FAERS Safety Report 7197234-2 (Version None)
Quarter: 2010Q4

REPORT INFORMATION
  Report Type: 
  Country: None (occurrence: None)
  Receive Date: 20101224
  Receipt Date: 20101222
  Transmission Date: 20110411
  Serious: Yes (Other)
  Sender: FDA-Public Use
  Company Number: CR-BRISTOL-MYERS SQUIBB COMPANY-15457054

PATIENT
  Sex: Male

DRUGS (1)
  1. COUMADIN [Suspect]

REACTIONS (2)
  - COUNTERFEIT DRUG ADMINISTERED [None]
  - THROMBOSIS [None]
